FAERS Safety Report 5501911-6 (Version None)
Quarter: 2007Q4

REPORT INFORMATION
  Report Type: 
  Country: None (occurrence: None)
  Receive Date: 20071022
  Receipt Date: 20070820
  Transmission Date: 20080405
  Serious: No
  Sender: FDA-Public Use
  Company Number: SPV1-2007-03914

PATIENT
  Age: 42 Year
  Sex: Male
  Weight: 68 kg

DRUGS (3)
  1. VYVANSE [Suspect]
     Dosage: 70 MG, ONE DOSE, ORAL
     Route: 048
     Dates: start: 20070818, end: 20070818
  2. MIDRIN (DICHLORALPHENAZONE, ISOMETHEPTENE, PARACETAMOL) [Concomitant]
  3. GUARANA (PAULLINIA CUPANA) [Concomitant]

REACTIONS (6)
  - ACCIDENTAL EXPOSURE [None]
  - AGGRESSION [None]
  - DEREALISATION [None]
  - MOOD SWINGS [None]
  - PALPITATIONS [None]
  - SOMNAMBULISM [None]
